FAERS Safety Report 18334602 (Version 1)
Quarter: 2020Q4

REPORT INFORMATION
  Report Type: Spontaneous
  Country: US (occurrence: US)
  Receive Date: 20201001
  Receipt Date: 20201001
  Transmission Date: 20210113
  Serious: No
  Sender: FDA-Public Use
  Company Number: US-GLAXOSMITHKLINE-US2020190272

PATIENT
  Age: 84 Year
  Sex: Female

DRUGS (1)
  1. VOLTAREN ARTHRITIS PAIN [Suspect]
     Active Substance: DICLOFENAC SODIUM
     Indication: ARTHRITIS
     Dosage: UNK

REACTIONS (6)
  - Adverse drug reaction [Unknown]
  - Application site exfoliation [Unknown]
  - Application site erosion [Unknown]
  - Application site pruritus [Unknown]
  - Application site pain [Unknown]
  - Application site dryness [Unknown]
